FAERS Safety Report 6355701-5 (Version None)
Quarter: 2009Q3

REPORT INFORMATION
  Report Type: 
  Country: None (occurrence: None)
  Receive Date: 20090910
  Receipt Date: 20090826
  Transmission Date: 20100115
  Serious: Yes (Other)
  Sender: FDA-Public Use
  Company Number: 2009AL004576

PATIENT
  Age: 60 Year
  Sex: Female

DRUGS (6)
  1. SERTRALINE HYDROCHLORIDE [Suspect]
     Indication: DEPRESSION
     Dosage: 25 MG;QD;PO
     Route: 048
     Dates: start: 20090216, end: 20090404
  2. LEVOTHYROXINE SODIUM [Concomitant]
  3. OLMESARTAN MEDOXOMIL [Concomitant]
  4. ACETYLSALICYLIC ACID [Concomitant]
  5. HYPURIN BOVINE LENTE [Concomitant]
  6. MACROGOL [Concomitant]

REACTIONS (13)
  - ABNORMAL DREAMS [None]
  - AGITATION [None]
  - AMNESIA [None]
  - ARTHRALGIA [None]
  - BLEPHAROSPASM [None]
  - DIZZINESS [None]
  - DYSPEPSIA [None]
  - DYSPHAGIA [None]
  - EAR PAIN [None]
  - GRAND MAL CONVULSION [None]
  - HEADACHE [None]
  - PARAESTHESIA [None]
  - SWOLLEN TONGUE [None]
